FAERS Safety Report 8909925 (Version 1)
Quarter: 2012Q4

REPORT INFORMATION
  Report Type: 
  Country: BR (occurrence: BR)
  Receive Date: 20121115
  Receipt Date: 20121115
  Transmission Date: 20130627
  Serious: Yes (Other)
  Sender: FDA-Public Use
  Company Number: BR-PFIZER INC-2012282567

PATIENT
  Age: 44 Year
  Sex: Male
  Weight: 99 kg

DRUGS (1)
  1. CELEBRA [Suspect]
     Dosage: UNK
     Dates: start: 1997

REACTIONS (3)
  - Cyst [Unknown]
  - Ligament injury [Unknown]
  - Muscle atrophy [Unknown]
